FAERS Safety Report 15290017 (Version 1)
Quarter: 2018Q3

REPORT INFORMATION
  Report Type: Spontaneous
  Country: US (occurrence: US)
  Receive Date: 20180817
  Receipt Date: 20180817
  Transmission Date: 20181010
  Serious: Yes (Death, Other)
  Sender: FDA-Public Use
  Company Number: US-IGSA-SR10006773

PATIENT
  Age: 80 Year
  Sex: Male
  Weight: 88 kg

DRUGS (19)
  1. SOTALOL. [Concomitant]
     Active Substance: SOTALOL
  2. AVODART [Concomitant]
     Active Substance: DUTASTERIDE
  3. GAMUNEX?C [Suspect]
     Active Substance: HUMAN IMMUNOGLOBULIN G
     Dosage: 45 G, UNK
     Route: 042
     Dates: start: 20180730, end: 20180730
  4. TYLENOL [Concomitant]
     Active Substance: ACETAMINOPHEN
     Indication: PREMEDICATION
  5. ASA [Concomitant]
     Active Substance: ASPIRIN
  6. GAMUNEX?C [Suspect]
     Active Substance: HUMAN IMMUNOGLOBULIN G
     Dosage: UNK
     Route: 042
     Dates: start: 20180731, end: 20180731
  7. DOXAZOSIN [Concomitant]
     Active Substance: DOXAZOSIN\DOXAZOSIN MESYLATE
  8. GABAPENTIN. [Concomitant]
     Active Substance: GABAPENTIN
  9. ZANAFLEX [Concomitant]
     Active Substance: TIZANIDINE HYDROCHLORIDE
  10. VITAMINS WITH MINERALS [Concomitant]
     Active Substance: MINERALS\VITAMINS
  11. FLOMAX [Concomitant]
     Active Substance: TAMSULOSIN HYDROCHLORIDE
  12. GAMUNEX?C [Suspect]
     Active Substance: HUMAN IMMUNOGLOBULIN G
     Indication: CHRONIC INFLAMMATORY DEMYELINATING POLYRADICULONEUROPATHY
     Dosage: UNK
     Route: 042
     Dates: start: 20180731, end: 20180731
  13. LIPITOR [Concomitant]
     Active Substance: ATORVASTATIN CALCIUM
  14. HYDROXYZINE [Concomitant]
     Active Substance: HYDROXYZINE HYDROCHLORIDE
  15. METHADONE [Concomitant]
     Active Substance: METHADONE HYDROCHLORIDE
  16. CYMBALTA [Concomitant]
     Active Substance: DULOXETINE HYDROCHLORIDE
  17. OMEPRAZOLE. [Concomitant]
     Active Substance: OMEPRAZOLE
  18. CALCIUM [Concomitant]
     Active Substance: CALCIUM
  19. BENADRYL [Concomitant]
     Active Substance: DIPHENHYDRAMINE HYDROCHLORIDE
     Indication: PREMEDICATION

REACTIONS (2)
  - Lethargy [Not Recovered/Not Resolved]
  - Unresponsive to stimuli [Fatal]

NARRATIVE: CASE EVENT DATE: 20180731
